FAERS Safety Report 6286012-4 (Version None)
Quarter: 2009Q3

REPORT INFORMATION
  Report Type: 
  Country: None (occurrence: None)
  Receive Date: 20090728
  Receipt Date: 20090721
  Transmission Date: 20100115
  Serious: Yes (Life-Threatening, Hospitalization, Other)
  Sender: FDA-Public Use
  Company Number: FR-BAYER-200923483GPV

PATIENT
  Age: 59 Year
  Sex: Male
  Weight: 93 kg

DRUGS (11)
  1. ZEVALIN [Suspect]
     Indication: MANTLE CELL LYMPHOMA
     Dates: start: 20090226, end: 20090226
  2. YTRACIS [Suspect]
     Indication: MANTLE CELL LYMPHOMA
     Dates: start: 20090226, end: 20090226
  3. FLUDARABINE PHOSPHATE [Suspect]
     Indication: MANTLE CELL LYMPHOMA
     Dates: start: 20090306, end: 20090310
  4. RITUXIMAB [Concomitant]
     Indication: MANTLE CELL LYMPHOMA
     Dates: start: 20090201, end: 20090201
  5. RITUXIMAB [Concomitant]
     Dates: start: 20090226, end: 20090226
  6. AVANDIA [Concomitant]
     Indication: TYPE 2 DIABETES MELLITUS
  7. AMAREL [Concomitant]
     Indication: TYPE 2 DIABETES MELLITUS
  8. GLUCOR [Concomitant]
     Indication: TYPE 2 DIABETES MELLITUS
  9. VISKEN [Concomitant]
     Indication: CHEST PAIN
     Dates: start: 20030101
  10. LEVOTHYROX [Concomitant]
     Indication: BASEDOW'S DISEASE
  11. CYMEVAN [Concomitant]

REACTIONS (7)
  - ABDOMINAL PAIN [None]
  - BONE MARROW FAILURE [None]
  - CHOLELITHIASIS [None]
  - CYTOMEGALOVIRUS TEST POSITIVE [None]
  - HYPOTENSION [None]
  - RENAL FAILURE [None]
  - SEPTIC SHOCK [None]
